FAERS Safety Report 25853644 (Version 2)
Quarter: 2025Q3

REPORT INFORMATION
  Report Type: Spontaneous
  Country: IL (occurrence: IL)
  Receive Date: 20250926
  Receipt Date: 20250929
  Transmission Date: 20251020
  Serious: Yes (Other)
  Sender: PFIZER
  Company Number: IL-MLMSERVICE-20250916-PI647992-00270-1

PATIENT
  Age: 6 Month
  Sex: Male

DRUGS (19)
  1. METHYLPREDNISOLONE SODIUM SUCCINATE [Suspect]
     Active Substance: METHYLPREDNISOLONE SODIUM SUCCINATE
     Indication: Takayasu^s arteritis
     Route: 042
  2. PREDNISOLONE [Suspect]
     Active Substance: PREDNISOLONE
     Indication: Takayasu^s arteritis
     Route: 048
  3. INFLIXIMAB [Concomitant]
     Active Substance: INFLIXIMAB
     Indication: Takayasu^s arteritis
  4. INFLIXIMAB [Concomitant]
     Active Substance: INFLIXIMAB
     Dosage: UNK, MONTHLY INFUSION
  5. NIFEDIPINE [Concomitant]
     Active Substance: NIFEDIPINE
     Indication: Hypertension
  6. NIFEDIPINE [Concomitant]
     Active Substance: NIFEDIPINE
     Route: 048
  7. CLONIDINE [Concomitant]
     Active Substance: CLONIDINE
     Indication: Hypertension
     Route: 048
  8. LABETALOL [Concomitant]
     Active Substance: LABETALOL
     Indication: Hypertension
     Route: 042
  9. LABETALOL [Concomitant]
     Active Substance: LABETALOL
     Route: 048
  10. HYDRALAZINE [Concomitant]
     Active Substance: HYDRALAZINE HYDROCHLORIDE
     Indication: Hypertension
     Route: 042
  11. HYDRALAZINE [Concomitant]
     Active Substance: HYDRALAZINE HYDROCHLORIDE
     Route: 048
  12. AMLODIPINE [Concomitant]
     Active Substance: AMLODIPINE BESYLATE
     Indication: Hypertension
     Route: 048
  13. ENALAPRIL [Concomitant]
     Active Substance: ENALAPRIL
     Indication: Hypertension
  14. DOXAZOSIN [Concomitant]
     Active Substance: DOXAZOSIN MESYLATE
     Indication: Hypertension
  15. MINOXIDIL [Concomitant]
     Active Substance: MINOXIDIL
     Indication: Hypertension
  16. NITROPRUSSIDE [Concomitant]
     Active Substance: NITROPRUSSIDE
     Indication: Hypertension
     Route: 042
  17. PHENTOLAMINE [Concomitant]
     Active Substance: PHENTOLAMINE
     Indication: Hypertension
     Route: 042
  18. NICARDIPINE [Concomitant]
     Active Substance: NICARDIPINE
     Indication: Hypertension
     Route: 042
  19. HUMAN IMMUNOGLOBULIN G [Concomitant]
     Active Substance: HUMAN IMMUNOGLOBULIN G
     Indication: Hypogammaglobulinaemia

REACTIONS (7)
  - Inguinal hernia [Unknown]
  - Peritonitis bacterial [Unknown]
  - Gross motor delay [Recovering/Resolving]
  - Speech disorder developmental [Recovering/Resolving]
  - Food aversion [Unknown]
  - Growth retardation [Recovering/Resolving]
  - Off label use [Unknown]
